FAERS Safety Report 8339488-2 (Version None)
Quarter: 2012Q2

REPORT INFORMATION
  Report Type: 
  Country: None (occurrence: None)
  Receive Date: 20120507
  Receipt Date: 20120427
  Transmission Date: 20120825
  Serious: No
  Sender: FDA-Public Use
  Company Number: PHHY2012JP033654

PATIENT
  Age: 23 Year
  Sex: Female
  Weight: 60 kg

DRUGS (9)
  1. OLANZAPINE [Concomitant]
     Dosage: 20 MG, UNK
     Route: 048
  2. SERTRALINE HYDROCHLORIDE [Concomitant]
     Dosage: 50 MG, UNK
     Route: 048
  3. OLANZAPINE [Concomitant]
     Dosage: 10 MG, UNK
     Route: 048
  4. METHYLPHENIDATE HCL [Suspect]
     Dosage: UNK UKN, UNK
     Route: 048
  5. LEVOMEPROMAZINE MALEATE [Concomitant]
     Dosage: 300 MG, UNK
     Route: 048
  6. PROPERICIAZINE [Concomitant]
     Dosage: 120 MG, UNK
     Route: 048
  7. HALOPERIDOL [Concomitant]
     Dosage: 9 MG, UNK
     Route: 048
  8. RISPERIDONE [Concomitant]
     Dosage: 3 ML, UNK
     Route: 048
  9. TANDOSPIRONE CITRATE [Concomitant]
     Dosage: 30 MG, UNK
     Route: 048

REACTIONS (1)
  - DRUG INEFFECTIVE [None]
